FAERS Safety Report 4673566-4 (Version None)
Quarter: 2005Q2

REPORT INFORMATION
  Report Type: 
  Country: None (occurrence: None)
  Receive Date: 20050523
  Receipt Date: 20050512
  Transmission Date: 20051028
  Serious: Yes (Hospitalization)
  Sender: FDA-Public Use
  Company Number: 200512010BCC

PATIENT
  Age: 87 Year
  Sex: Male
  Weight: 77.1115 kg

DRUGS (6)
  1. REGIMEN BAYER 81MG (ACETYLSALICYLIC ACID) [Suspect]
     Indication: MYOCARDIAL INFARCTION
     Dosage: 81MG, QD, ORAL
     Route: 048
     Dates: end: 20041101
  2. REGIMEN BAYER 81MG (ACETYLSALICYLIC ACID) [Suspect]
     Indication: PROPHYLAXIS
     Dosage: 81MG, QD, ORAL
     Route: 048
     Dates: end: 20041101
  3. PLAVIX [Suspect]
     Dates: end: 20041101
  4. ZESTRIL [Concomitant]
  5. TOPROL-XL [Concomitant]
  6. AMARYL [Concomitant]

REACTIONS (2)
  - CONTUSION [None]
  - HAEMORRHAGE SUBCUTANEOUS [None]
